FAERS Safety Report 9444285 (Version 1)
Quarter: 2013Q3

REPORT INFORMATION
  Report Type: Spontaneous
  Country: FR (occurrence: FR)
  Receive Date: 20130807
  Receipt Date: 20130807
  Transmission Date: 20140515
  Serious: Yes (Other)
  Sender: FDA-Public Use
  Company Number: FR-MYLANLABS-2013S1016763

PATIENT
  Age: 25 Year
  Sex: Male

DRUGS (3)
  1. ARIPIPRAZOLE [Suspect]
     Indication: SCHIZOPHRENIA
     Route: 065
     Dates: start: 201110
  2. CLOZAPINE [Interacting]
     Indication: SCHIZOPHRENIA
     Route: 065
     Dates: start: 201009
  3. CLOZAPINE [Interacting]
     Indication: SCHIZOPHRENIA
     Route: 065
     Dates: start: 201009

REACTIONS (2)
  - Intestinal obstruction [Recovering/Resolving]
  - Drug interaction [Recovering/Resolving]
